FAERS Safety Report 10356220 (Version 3)
Quarter: 2015Q1

REPORT INFORMATION
  Report Type: Spontaneous
  Country: CO (occurrence: CO)
  Receive Date: 20140801
  Receipt Date: 20150325
  Transmission Date: 20150720
  Serious: Yes (Other)
  Sender: FDA-Public Use
  Company Number: CO-AMGEN-COLSP2014058226

PATIENT
  Age: 80 Year
  Sex: Male

DRUGS (2)
  1. ENBREL [Suspect]
     Active Substance: ETANERCEPT
     Indication: RHEUMATOID ARTHRITIS
     Dosage: UNK
     Route: 065
  2. ENBREL [Suspect]
     Active Substance: ETANERCEPT
     Indication: ANKYLOSING SPONDYLITIS
     Dosage: 50 MG, WEEKLY
     Route: 058
     Dates: start: 2009, end: 201411

REACTIONS (10)
  - Immunosuppression [Not Recovered/Not Resolved]
  - Facial pain [Not Recovered/Not Resolved]
  - Neoplasm malignant [Unknown]
  - Granuloma [Not Recovered/Not Resolved]
  - Infected cyst [Not Recovered/Not Resolved]
  - Speech disorder [Unknown]
  - Drug effect incomplete [Unknown]
  - Herpes zoster [Recovered/Resolved with Sequelae]
  - Pruritus [Not Recovered/Not Resolved]
  - Fistula [Not Recovered/Not Resolved]

NARRATIVE: CASE EVENT DATE: 2010
